FAERS Safety Report 13787033 (Version 5)
Quarter: 2021Q4

REPORT INFORMATION
  Report Type: Report from Study
  Country: US (occurrence: US)
  Receive Date: 20170725
  Receipt Date: 20211206
  Transmission Date: 20220303
  Serious: Yes (Hospitalization, Other)
  Sender: FDA-Public Use
  Company Number: US-JAZZ-2017-US-009416

PATIENT
  Age: 29 Year
  Sex: Female

DRUGS (35)
  1. XYREM [Suspect]
     Active Substance: SODIUM OXYBATE
     Indication: Narcolepsy
     Dosage: 2.25 G, BID
     Route: 048
     Dates: start: 201603, end: 201603
  2. XYREM [Suspect]
     Active Substance: SODIUM OXYBATE
     Indication: Cataplexy
     Dosage: DOSE ADJUSTMENTS
     Route: 048
     Dates: start: 201603, end: 201604
  3. XYREM [Suspect]
     Active Substance: SODIUM OXYBATE
     Dosage: 4.5 G, BID
     Route: 048
     Dates: start: 201604, end: 2017
  4. CYCLOBENZAPRINE [Concomitant]
     Active Substance: CYCLOBENZAPRINE
     Indication: Product used for unknown indication
     Dosage: UNK
     Dates: start: 20161223
  5. VANCOMYCIN HYDROCHLORIDE [Concomitant]
     Active Substance: VANCOMYCIN HYDROCHLORIDE
     Indication: Product used for unknown indication
     Dosage: UNK
     Dates: start: 20161125
  6. AMITRIPTYLINE [Concomitant]
     Active Substance: AMITRIPTYLINE
     Indication: Product used for unknown indication
  7. ATENOLOL [Concomitant]
     Active Substance: ATENOLOL
     Indication: Product used for unknown indication
  8. CARAFATE [Concomitant]
     Active Substance: SUCRALFATE
     Indication: Product used for unknown indication
  9. CHLORDIAZEPOXIDE\CLIDINIUM [Concomitant]
     Active Substance: CHLORDIAZEPOXIDE\CLIDINIUM
     Indication: Product used for unknown indication
  10. CLONAZEPAM [Concomitant]
     Active Substance: CLONAZEPAM
     Indication: Product used for unknown indication
  11. GABAPENTIN [Concomitant]
     Active Substance: GABAPENTIN
     Indication: Product used for unknown indication
  12. LEVETIRACETAM [Concomitant]
     Active Substance: LEVETIRACETAM
     Indication: Product used for unknown indication
  13. LIALDA [Concomitant]
     Active Substance: MESALAMINE
     Indication: Product used for unknown indication
  14. MODAFINIL [Concomitant]
     Active Substance: MODAFINIL
     Indication: Product used for unknown indication
  15. NEUPRO [Concomitant]
     Active Substance: ROTIGOTINE
     Indication: Product used for unknown indication
  16. NOVOLOG [Concomitant]
     Active Substance: INSULIN ASPART
     Indication: Product used for unknown indication
  17. PROMETHAZINE [Concomitant]
     Active Substance: PROMETHAZINE HYDROCHLORIDE
     Indication: Product used for unknown indication
  18. REMICADE [Concomitant]
     Active Substance: INFLIXIMAB
     Indication: Product used for unknown indication
  19. SUMATRIPTAN SUCCINATE [Concomitant]
     Active Substance: SUMATRIPTAN SUCCINATE
     Indication: Product used for unknown indication
  20. TOPAMAX [Concomitant]
     Active Substance: TOPIRAMATE
     Indication: Product used for unknown indication
  21. TRAMADOL HCL [Concomitant]
     Active Substance: TRAMADOL HYDROCHLORIDE
     Indication: Product used for unknown indication
     Dosage: UNK
     Dates: end: 201605
  22. TYLENOL EXTRA STRENGTH [Concomitant]
     Active Substance: ACETAMINOPHEN
     Indication: Product used for unknown indication
  23. CEPHALEXIN [Concomitant]
     Active Substance: CEPHALEXIN
     Indication: Product used for unknown indication
     Dosage: UNK
     Dates: start: 20161228
  24. OMEPRAZOLE [Concomitant]
     Active Substance: OMEPRAZOLE
     Indication: Product used for unknown indication
  25. ONDANSETRON [Concomitant]
     Active Substance: ONDANSETRON
     Indication: Product used for unknown indication
  26. OMEPRAZOLE [Concomitant]
     Active Substance: OMEPRAZOLE
  27. ELIQUIS [Concomitant]
     Active Substance: APIXABAN
  28. INSULIN NOS [Concomitant]
     Active Substance: INSULIN NOS
  29. DEPAKOTE ER [Concomitant]
     Active Substance: DIVALPROEX SODIUM
  30. PEPCID AC [Concomitant]
     Active Substance: FAMOTIDINE
  31. FERROUS SULFATE [Concomitant]
     Active Substance: FERROUS SULFATE
  32. REGLAN [Concomitant]
     Active Substance: METOCLOPRAMIDE HYDROCHLORIDE
  33. ZOFRAN [Concomitant]
     Active Substance: ONDANSETRON HYDROCHLORIDE
  34. PRIMIDONE [Concomitant]
     Active Substance: PRIMIDONE
  35. NURTEC ODT [Concomitant]
     Active Substance: RIMEGEPANT SULFATE

REACTIONS (3)
  - Hidradenitis [Unknown]
  - Postoperative wound infection [Unknown]
  - Nerve injury [Unknown]

NARRATIVE: CASE EVENT DATE: 20170101
